FAERS Safety Report 12369982 (Version 4)
Quarter: 2016Q2

REPORT INFORMATION
  Report Type: Spontaneous
  Country: US (occurrence: US)
  Receive Date: 20160516
  Receipt Date: 20160603
  Transmission Date: 20160815
  Serious: Yes (Hospitalization, Disabling, Other)
  Sender: FDA-Public Use
  Company Number: US-TAKEDA-2016TUS008203

PATIENT
  Sex: Female

DRUGS (1)
  1. ACTOS [Suspect]
     Active Substance: PIOGLITAZONE HYDROCHLORIDE
     Indication: PRODUCT USED FOR UNKNOWN INDICATION
     Dosage: UNK
     Route: 048
     Dates: start: 2007

REACTIONS (11)
  - Malaise [Unknown]
  - Urinary bladder rupture [Unknown]
  - Large intestine perforation [Unknown]
  - Weight increased [Unknown]
  - Disability [Not Recovered/Not Resolved]
  - Hysterectomy [Unknown]
  - Bowel movement irregularity [Unknown]
  - Fear of death [Unknown]
  - Haemorrhage [Unknown]
  - Bladder cancer [Unknown]
  - Cardiac operation [Unknown]
